FAERS Safety Report 9313648 (Version 2)
Quarter: 2014Q3

REPORT INFORMATION
  Report Type: Spontaneous
  Country: US (occurrence: US)
  Receive Date: 20130529
  Receipt Date: 20140827
  Transmission Date: 20150326
  Serious: Yes (Hospitalization, Other)
  Sender: FDA-Public Use
  Company Number: US-009507513-1305USA012991

PATIENT
  Sex: Female

DRUGS (1)
  1. NUVARING [Suspect]
     Active Substance: ETHINYL ESTRADIOL\ETONOGESTREL
     Indication: MENSTRUATION IRREGULAR
     Dosage: UNK
     Route: 067
     Dates: start: 2009

REACTIONS (15)
  - Loss of consciousness [Recovered/Resolved]
  - Ligament injury [Unknown]
  - Cholecystectomy [Unknown]
  - Pleuritic pain [Unknown]
  - Plantar fasciitis [Unknown]
  - Gastric bypass [Unknown]
  - Ovarian cystectomy [Unknown]
  - Off label use [Unknown]
  - Ventricular extrasystoles [Recovering/Resolving]
  - Migraine [Unknown]
  - Gout [Unknown]
  - Gastrooesophageal reflux disease [Unknown]
  - Pulmonary embolism [Recovering/Resolving]
  - Dyspnoea [Unknown]
  - Oxygen saturation abnormal [Recovering/Resolving]

NARRATIVE: CASE EVENT DATE: 201005
